FAERS Safety Report 19939942 (Version 1)
Quarter: 2021Q4

REPORT INFORMATION
  Report Type: Spontaneous
  Country: TR (occurrence: TR)
  Receive Date: 20211011
  Receipt Date: 20211011
  Transmission Date: 20220303
  Serious: Yes (Other)
  Sender: FDA-Public Use
  Company Number: TR-NOVARTISPH-NVSC2021TR229600

PATIENT
  Age: 57 Year
  Sex: Male

DRUGS (1)
  1. SACUBITRIL\VALSARTAN [Suspect]
     Active Substance: SACUBITRIL\VALSARTAN
     Indication: Cardiac disorder
     Dosage: UNK
     Route: 065

REACTIONS (2)
  - Retinitis pigmentosa [Not Recovered/Not Resolved]
  - Concomitant disease progression [Not Recovered/Not Resolved]
